FAERS Safety Report 6374084-8 (Version None)
Quarter: 2009Q3

REPORT INFORMATION
  Report Type: 
  Country: None (occurrence: None)
  Receive Date: 20090924
  Receipt Date: 20090629
  Transmission Date: 20100115
  Serious: Yes (Other)
  Sender: FDA-Public Use
  Company Number: US-ASTRAZENECA-2009UW18160

PATIENT
  Age: 54 Year
  Sex: Male
  Weight: 152.4 kg

DRUGS (7)
  1. SEROQUEL XR [Suspect]
     Indication: BIPOLAR DISORDER
     Route: 048
  2. SEROQUEL XR [Suspect]
     Indication: MANIA
     Route: 048
  3. ZOLOFT [Concomitant]
  4. ATIVAN [Concomitant]
  5. GLIPERIDE [Concomitant]
  6. AUGMENTIN [Concomitant]
  7. CODEINE SULFATE [Concomitant]
     Indication: PAIN

REACTIONS (2)
  - BLOOD GLUCOSE INCREASED [None]
  - GLYCOSYLATED HAEMOGLOBIN INCREASED [None]
